FAERS Safety Report 19716109 (Version 1)
Quarter: 2021Q3

REPORT INFORMATION
  Report Type: Spontaneous
  Country: US (occurrence: US)
  Receive Date: 20210819
  Receipt Date: 20210819
  Transmission Date: 20211014
  Serious: Yes (Other)
  Sender: FDA-Public Use
  Company Number: US-ORPHANEU-2021003249

PATIENT

DRUGS (3)
  1. ISTURISA [Suspect]
     Active Substance: OSILODROSTAT PHOSPHATE
     Dosage: 10 MG, 1 TABLET BY MOUTH TWICE A DAY;
     Route: 048
     Dates: start: 2021
  2. ISTURISA [Suspect]
     Active Substance: OSILODROSTAT PHOSPHATE
     Dosage: 5 MG, 1 TABLET BY MOUTH TWICE A DAY
     Route: 048
     Dates: start: 2021
  3. ISTURISA [Suspect]
     Active Substance: OSILODROSTAT PHOSPHATE
     Indication: CUSHING^S SYNDROME
     Dosage: 1 MILLIGRAM  3 TABLETS TWICE DAILY
     Route: 048
     Dates: start: 20210428

REACTIONS (1)
  - Pituitary gland operation [Unknown]

NARRATIVE: CASE EVENT DATE: 20210804
